FAERS Safety Report 11102000 (Version 2)
Quarter: 2015Q2

REPORT INFORMATION
  Report Type: Report from Study
  Country: US (occurrence: US)
  Receive Date: 20150510
  Receipt Date: 20150512
  Transmission Date: 20150821
  Serious: Yes (Hospitalization, Other)
  Sender: FDA-Public Use
  Company Number: US-ASTRAZENECA-2013SE34412

PATIENT
  Age: 24811 Day
  Sex: Male
  Weight: 96.2 kg

DRUGS (8)
  1. NEXIUM [Suspect]
     Active Substance: ESOMEPRAZOLE MAGNESIUM
     Indication: GASTROOESOPHAGEAL REFLUX DISEASE
     Route: 048
  2. NEXIUM [Suspect]
     Active Substance: ESOMEPRAZOLE MAGNESIUM
     Indication: ABDOMINAL DISCOMFORT
     Route: 048
  3. NEXIUM [Suspect]
     Active Substance: ESOMEPRAZOLE MAGNESIUM
     Indication: IRRITABLE BOWEL SYNDROME
     Route: 048
  4. TOPROL XL [Suspect]
     Active Substance: METOPROLOL SUCCINATE
     Route: 048
  5. CRESTOR [Suspect]
     Active Substance: ROSUVASTATIN CALCIUM
     Indication: BLOOD CHOLESTEROL ABNORMAL
     Route: 048
  6. NEXIUM [Suspect]
     Active Substance: ESOMEPRAZOLE MAGNESIUM
     Indication: GASTROOESOPHAGEAL REFLUX DISEASE
     Route: 048
  7. NEXIUM [Suspect]
     Active Substance: ESOMEPRAZOLE MAGNESIUM
     Indication: IRRITABLE BOWEL SYNDROME
     Route: 048
  8. NEXIUM [Suspect]
     Active Substance: ESOMEPRAZOLE MAGNESIUM
     Indication: ABDOMINAL DISCOMFORT
     Route: 048

REACTIONS (10)
  - Aneurysm [Unknown]
  - Cardiac aneurysm [Recovered/Resolved]
  - Off label use [Unknown]
  - Irritable bowel syndrome [Unknown]
  - Gastrooesophageal reflux disease [Unknown]
  - Drug dose omission [Unknown]
  - Feeling abnormal [Recovered/Resolved]
  - Abdominal discomfort [Unknown]
  - Intentional product misuse [Unknown]
  - Renal aneurysm [Recovered/Resolved]

NARRATIVE: CASE EVENT DATE: 20130501
